FAERS Safety Report 17452242 (Version 11)
Quarter: 2025Q3

REPORT INFORMATION
  Report Type: Report from Study
  Country: EU (occurrence: EU)
  Receive Date: 20200224
  Receipt Date: 20250915
  Transmission Date: 20251021
  Serious: Yes (Death, Hospitalization, Other)
  Sender: MYLAN
  Company Number: EU-ACTELION-A-CH2018-182053

PATIENT
  Age: 79 Year
  Sex: Female
  Weight: 69 kg

DRUGS (172)
  1. SILDENAFIL [Suspect]
     Active Substance: SILDENAFIL
     Indication: Pulmonary arterial hypertension
     Dosage: 20 MILLIGRAM, QD
     Dates: start: 20171206, end: 20180130
  2. SILDENAFIL [Suspect]
     Active Substance: SILDENAFIL
     Dosage: 20 MILLIGRAM, QD
     Route: 048
     Dates: start: 20171206, end: 20180130
  3. SILDENAFIL [Suspect]
     Active Substance: SILDENAFIL
     Dosage: 20 MILLIGRAM, QD
     Route: 048
     Dates: start: 20171206, end: 20180130
  4. SILDENAFIL [Suspect]
     Active Substance: SILDENAFIL
     Dosage: 20 MILLIGRAM, QD
     Dates: start: 20171206, end: 20180130
  5. UPTRAVI [Suspect]
     Active Substance: SELEXIPAG
     Indication: Pulmonary arterial hypertension
     Dosage: 400 MICROGRAM, QD
     Dates: start: 20180902, end: 20180909
  6. UPTRAVI [Suspect]
     Active Substance: SELEXIPAG
     Dosage: 400 MICROGRAM, QD
     Route: 048
     Dates: start: 20180902, end: 20180909
  7. UPTRAVI [Suspect]
     Active Substance: SELEXIPAG
     Dosage: 400 MICROGRAM, QD
     Route: 048
     Dates: start: 20180902, end: 20180909
  8. UPTRAVI [Suspect]
     Active Substance: SELEXIPAG
     Dosage: 400 MICROGRAM, QD
     Dates: start: 20180902, end: 20180909
  9. UPTRAVI [Suspect]
     Active Substance: SELEXIPAG
     Dosage: 800 MICROGRAM, QD
     Route: 048
     Dates: start: 20180909, end: 20180916
  10. UPTRAVI [Suspect]
     Active Substance: SELEXIPAG
     Dosage: 800 MICROGRAM, QD
     Dates: start: 20180909, end: 20180916
  11. UPTRAVI [Suspect]
     Active Substance: SELEXIPAG
     Dosage: 800 MICROGRAM, QD
     Route: 048
     Dates: start: 20180909, end: 20180916
  12. UPTRAVI [Suspect]
     Active Substance: SELEXIPAG
     Dosage: 800 MICROGRAM, QD
     Dates: start: 20180909, end: 20180916
  13. UPTRAVI [Suspect]
     Active Substance: SELEXIPAG
     Dosage: 1200 MCG, QD
     Route: 048
     Dates: start: 20180916, end: 20180929
  14. UPTRAVI [Suspect]
     Active Substance: SELEXIPAG
     Dosage: 1200 MCG, QD
     Route: 048
     Dates: start: 20180916, end: 20180929
  15. UPTRAVI [Suspect]
     Active Substance: SELEXIPAG
     Dosage: 1200 MCG, QD
     Dates: start: 20180916, end: 20180929
  16. UPTRAVI [Suspect]
     Active Substance: SELEXIPAG
     Dosage: 1200 MCG, QD
     Dates: start: 20180916, end: 20180929
  17. UPTRAVI [Suspect]
     Active Substance: SELEXIPAG
     Dosage: 1600 MICROGRAM, QD (800 MCG, BID)
     Dates: start: 20180929, end: 20181005
  18. UPTRAVI [Suspect]
     Active Substance: SELEXIPAG
     Dosage: 1600 MICROGRAM, QD (800 MCG, BID)
     Route: 048
     Dates: start: 20180929, end: 20181005
  19. UPTRAVI [Suspect]
     Active Substance: SELEXIPAG
     Dosage: 1600 MICROGRAM, QD (800 MCG, BID)
     Route: 048
     Dates: start: 20180929, end: 20181005
  20. UPTRAVI [Suspect]
     Active Substance: SELEXIPAG
     Dosage: 1600 MICROGRAM, QD (800 MCG, BID)
     Dates: start: 20180929, end: 20181005
  21. UPTRAVI [Suspect]
     Active Substance: SELEXIPAG
     Dosage: 1200 MICROGRAM, QD (600 MCG, BID)
     Route: 048
     Dates: start: 20181005, end: 20210103
  22. UPTRAVI [Suspect]
     Active Substance: SELEXIPAG
     Dosage: 1200 MICROGRAM, QD (600 MCG, BID)
     Dates: start: 20181005, end: 20210103
  23. UPTRAVI [Suspect]
     Active Substance: SELEXIPAG
     Dosage: 1200 MICROGRAM, QD (600 MCG, BID)
     Dates: start: 20181005, end: 20210103
  24. UPTRAVI [Suspect]
     Active Substance: SELEXIPAG
     Dosage: 1200 MICROGRAM, QD (600 MCG, BID)
     Route: 048
     Dates: start: 20181005, end: 20210103
  25. UPTRAVI [Suspect]
     Active Substance: SELEXIPAG
  26. UPTRAVI [Suspect]
     Active Substance: SELEXIPAG
  27. UPTRAVI [Suspect]
     Active Substance: SELEXIPAG
     Route: 048
  28. UPTRAVI [Suspect]
     Active Substance: SELEXIPAG
     Route: 048
  29. UPTRAVI [Suspect]
     Active Substance: SELEXIPAG
     Dates: start: 20181005, end: 20210103
  30. UPTRAVI [Suspect]
     Active Substance: SELEXIPAG
     Dates: start: 20181005, end: 20210103
  31. UPTRAVI [Suspect]
     Active Substance: SELEXIPAG
     Route: 048
     Dates: start: 20181005, end: 20210103
  32. UPTRAVI [Suspect]
     Active Substance: SELEXIPAG
     Route: 048
     Dates: start: 20181005, end: 20210103
  33. UPTRAVI [Suspect]
     Active Substance: SELEXIPAG
     Dosage: 1600 MICROGRAM, QD
     Dates: start: 20210110, end: 20210129
  34. UPTRAVI [Suspect]
     Active Substance: SELEXIPAG
     Dosage: 1600 MICROGRAM, QD
     Dates: start: 20210110, end: 20210129
  35. UPTRAVI [Suspect]
     Active Substance: SELEXIPAG
     Dosage: 1600 MICROGRAM, QD
     Route: 048
     Dates: start: 20210110, end: 20210129
  36. UPTRAVI [Suspect]
     Active Substance: SELEXIPAG
     Dosage: 1600 MICROGRAM, QD
     Route: 048
     Dates: start: 20210110, end: 20210129
  37. UPTRAVI [Suspect]
     Active Substance: SELEXIPAG
     Dosage: 1400 MICROGRAM, QD
     Dates: start: 20210103, end: 20210110
  38. UPTRAVI [Suspect]
     Active Substance: SELEXIPAG
     Dosage: 1400 MICROGRAM, QD
     Dates: start: 20210103, end: 20210110
  39. UPTRAVI [Suspect]
     Active Substance: SELEXIPAG
     Dosage: 1400 MICROGRAM, QD
     Route: 048
     Dates: start: 20210103, end: 20210110
  40. UPTRAVI [Suspect]
     Active Substance: SELEXIPAG
     Dosage: 1400 MICROGRAM, QD
     Route: 048
     Dates: start: 20210103, end: 20210110
  41. OPSUMIT [Suspect]
     Active Substance: MACITENTAN
     Indication: Pulmonary arterial hypertension
     Dosage: 10 MG, QD
     Dates: start: 20170920, end: 20210129
  42. OPSUMIT [Suspect]
     Active Substance: MACITENTAN
     Dosage: 10 MG, QD
     Route: 048
     Dates: start: 20170920, end: 20210129
  43. OPSUMIT [Suspect]
     Active Substance: MACITENTAN
     Dosage: 10 MG, QD
     Route: 048
     Dates: start: 20170920, end: 20210129
  44. OPSUMIT [Suspect]
     Active Substance: MACITENTAN
     Dosage: 10 MG, QD
     Dates: start: 20170920, end: 20210129
  45. CHOLECALCIFEROL [Concomitant]
     Active Substance: CHOLECALCIFEROL
     Indication: Product used for unknown indication
  46. CHOLECALCIFEROL [Concomitant]
     Active Substance: CHOLECALCIFEROL
     Route: 048
  47. CHOLECALCIFEROL [Concomitant]
     Active Substance: CHOLECALCIFEROL
     Route: 048
  48. CHOLECALCIFEROL [Concomitant]
     Active Substance: CHOLECALCIFEROL
  49. BARNIDIPINE [Concomitant]
     Active Substance: BARNIDIPINE
     Indication: Product used for unknown indication
  50. BARNIDIPINE [Concomitant]
     Active Substance: BARNIDIPINE
  51. BARNIDIPINE [Concomitant]
     Active Substance: BARNIDIPINE
     Route: 048
  52. BARNIDIPINE [Concomitant]
     Active Substance: BARNIDIPINE
     Route: 048
  53. BARNIDIPINE [Concomitant]
     Active Substance: BARNIDIPINE
     Dates: start: 20181213, end: 20201008
  54. BARNIDIPINE [Concomitant]
     Active Substance: BARNIDIPINE
     Dates: start: 20181213, end: 20201008
  55. BARNIDIPINE [Concomitant]
     Active Substance: BARNIDIPINE
     Route: 048
     Dates: start: 20181213, end: 20201008
  56. BARNIDIPINE [Concomitant]
     Active Substance: BARNIDIPINE
     Route: 048
     Dates: start: 20181213, end: 20201008
  57. LEVOCETIRIZINE [Concomitant]
     Active Substance: LEVOCETIRIZINE
     Indication: Product used for unknown indication
  58. LEVOCETIRIZINE [Concomitant]
     Active Substance: LEVOCETIRIZINE
     Route: 048
  59. LEVOCETIRIZINE [Concomitant]
     Active Substance: LEVOCETIRIZINE
     Route: 048
  60. LEVOCETIRIZINE [Concomitant]
     Active Substance: LEVOCETIRIZINE
  61. NIFEDIPINE [Concomitant]
     Active Substance: NIFEDIPINE
     Indication: Product used for unknown indication
     Dates: start: 20191207, end: 20191217
  62. NIFEDIPINE [Concomitant]
     Active Substance: NIFEDIPINE
     Route: 048
     Dates: start: 20191207, end: 20191217
  63. NIFEDIPINE [Concomitant]
     Active Substance: NIFEDIPINE
     Route: 048
     Dates: start: 20191207, end: 20191217
  64. NIFEDIPINE [Concomitant]
     Active Substance: NIFEDIPINE
     Dates: start: 20191207, end: 20191217
  65. OXYGEN [Concomitant]
     Active Substance: OXYGEN
     Indication: Pulmonary arterial hypertension
  66. OXYGEN [Concomitant]
     Active Substance: OXYGEN
     Route: 055
  67. OXYGEN [Concomitant]
     Active Substance: OXYGEN
     Route: 055
  68. OXYGEN [Concomitant]
     Active Substance: OXYGEN
  69. Cetomacrogol;Paraffin, liquid;Propylene glycol;White soft paraffin [Concomitant]
     Indication: Product used for unknown indication
  70. Cetomacrogol;Paraffin, liquid;Propylene glycol;White soft paraffin [Concomitant]
     Route: 061
  71. Cetomacrogol;Paraffin, liquid;Propylene glycol;White soft paraffin [Concomitant]
     Route: 061
  72. Cetomacrogol;Paraffin, liquid;Propylene glycol;White soft paraffin [Concomitant]
  73. SPIRONOLACTONE [Concomitant]
     Active Substance: SPIRONOLACTONE
     Indication: Dyspnoea
  74. SPIRONOLACTONE [Concomitant]
     Active Substance: SPIRONOLACTONE
     Route: 048
  75. SPIRONOLACTONE [Concomitant]
     Active Substance: SPIRONOLACTONE
     Route: 048
  76. SPIRONOLACTONE [Concomitant]
     Active Substance: SPIRONOLACTONE
  77. PANTOPRAZOLE [Concomitant]
     Active Substance: PANTOPRAZOLE
     Indication: Product used for unknown indication
  78. PANTOPRAZOLE [Concomitant]
     Active Substance: PANTOPRAZOLE
     Route: 048
  79. PANTOPRAZOLE [Concomitant]
     Active Substance: PANTOPRAZOLE
     Route: 048
  80. PANTOPRAZOLE [Concomitant]
     Active Substance: PANTOPRAZOLE
  81. METOPROLOL [Concomitant]
     Active Substance: METOPROLOL
     Indication: Product used for unknown indication
  82. METOPROLOL [Concomitant]
     Active Substance: METOPROLOL
     Route: 048
  83. METOPROLOL [Concomitant]
     Active Substance: METOPROLOL
     Route: 048
  84. METOPROLOL [Concomitant]
     Active Substance: METOPROLOL
  85. FLECAINIDE [Concomitant]
     Active Substance: FLECAINIDE
     Indication: Product used for unknown indication
  86. FLECAINIDE [Concomitant]
     Active Substance: FLECAINIDE
     Route: 048
  87. FLECAINIDE [Concomitant]
     Active Substance: FLECAINIDE
     Route: 048
  88. FLECAINIDE [Concomitant]
     Active Substance: FLECAINIDE
  89. ADCIRCA [Concomitant]
     Active Substance: TADALAFIL
     Indication: Pulmonary arterial hypertension
     Dosage: 40 MG, QD
     Dates: start: 20180207
  90. ADCIRCA [Concomitant]
     Active Substance: TADALAFIL
     Dosage: 40 MG, QD
     Route: 048
     Dates: start: 20180207
  91. ADCIRCA [Concomitant]
     Active Substance: TADALAFIL
     Dosage: 40 MG, QD
     Route: 048
     Dates: start: 20180207
  92. ADCIRCA [Concomitant]
     Active Substance: TADALAFIL
     Dosage: 40 MG, QD
     Dates: start: 20180207
  93. CANDESARTAN CILEXETIL\HYDROCHLOROTHIAZIDE [Concomitant]
     Active Substance: CANDESARTAN CILEXETIL\HYDROCHLOROTHIAZIDE
     Indication: Product used for unknown indication
  94. CANDESARTAN CILEXETIL\HYDROCHLOROTHIAZIDE [Concomitant]
     Active Substance: CANDESARTAN CILEXETIL\HYDROCHLOROTHIAZIDE
     Route: 048
  95. CANDESARTAN CILEXETIL\HYDROCHLOROTHIAZIDE [Concomitant]
     Active Substance: CANDESARTAN CILEXETIL\HYDROCHLOROTHIAZIDE
     Route: 048
  96. CANDESARTAN CILEXETIL\HYDROCHLOROTHIAZIDE [Concomitant]
     Active Substance: CANDESARTAN CILEXETIL\HYDROCHLOROTHIAZIDE
  97. PRAVASTATIN [Concomitant]
     Active Substance: PRAVASTATIN
     Indication: Product used for unknown indication
  98. PRAVASTATIN [Concomitant]
     Active Substance: PRAVASTATIN
     Route: 048
  99. PRAVASTATIN [Concomitant]
     Active Substance: PRAVASTATIN
     Route: 048
  100. PRAVASTATIN [Concomitant]
     Active Substance: PRAVASTATIN
  101. TIOTROPIUM [Concomitant]
     Active Substance: TIOTROPIUM
     Indication: Product used for unknown indication
  102. TIOTROPIUM [Concomitant]
     Active Substance: TIOTROPIUM
     Route: 055
  103. TIOTROPIUM [Concomitant]
     Active Substance: TIOTROPIUM
     Route: 055
  104. TIOTROPIUM [Concomitant]
     Active Substance: TIOTROPIUM
  105. CETIRIZINE HYDROCHLORIDE [Concomitant]
     Active Substance: CETIRIZINE HYDROCHLORIDE
     Indication: Product used for unknown indication
     Dates: start: 20191207, end: 20191213
  106. CETIRIZINE HYDROCHLORIDE [Concomitant]
     Active Substance: CETIRIZINE HYDROCHLORIDE
     Route: 048
     Dates: start: 20191207, end: 20191213
  107. CETIRIZINE HYDROCHLORIDE [Concomitant]
     Active Substance: CETIRIZINE HYDROCHLORIDE
     Route: 048
     Dates: start: 20191207, end: 20191213
  108. CETIRIZINE HYDROCHLORIDE [Concomitant]
     Active Substance: CETIRIZINE HYDROCHLORIDE
     Dates: start: 20191207, end: 20191213
  109. FUROSEMIDE [Concomitant]
     Active Substance: FUROSEMIDE
     Indication: Dyspnoea
     Dosage: 80 MG, QD
  110. FUROSEMIDE [Concomitant]
     Active Substance: FUROSEMIDE
     Indication: Pleural effusion
     Dosage: 80 MG, QD
  111. FUROSEMIDE [Concomitant]
     Active Substance: FUROSEMIDE
     Dosage: 80 MG, QD
     Route: 048
  112. FUROSEMIDE [Concomitant]
     Active Substance: FUROSEMIDE
     Dosage: 80 MG, QD
     Route: 048
  113. FUROSEMIDE [Concomitant]
     Active Substance: FUROSEMIDE
     Dosage: UNK UNK, Q3D
     Dates: start: 2017
  114. FUROSEMIDE [Concomitant]
     Active Substance: FUROSEMIDE
     Dosage: UNK UNK, Q3D
     Dates: start: 2017
  115. FUROSEMIDE [Concomitant]
     Active Substance: FUROSEMIDE
     Dosage: UNK UNK, Q3D
     Route: 048
     Dates: start: 2017
  116. FUROSEMIDE [Concomitant]
     Active Substance: FUROSEMIDE
     Dosage: UNK UNK, Q3D
     Route: 048
     Dates: start: 2017
  117. FUROSEMIDE [Concomitant]
     Active Substance: FUROSEMIDE
     Dosage: UNK, BID
  118. FUROSEMIDE [Concomitant]
     Active Substance: FUROSEMIDE
     Dosage: UNK, BID
     Route: 048
  119. FUROSEMIDE [Concomitant]
     Active Substance: FUROSEMIDE
     Dosage: UNK, BID
  120. FUROSEMIDE [Concomitant]
     Active Substance: FUROSEMIDE
     Dosage: UNK, BID
     Route: 048
  121. MOMETASONE [Concomitant]
     Active Substance: MOMETASONE
     Indication: Product used for unknown indication
  122. MOMETASONE [Concomitant]
     Active Substance: MOMETASONE
     Route: 055
  123. MOMETASONE [Concomitant]
     Active Substance: MOMETASONE
     Route: 055
  124. MOMETASONE [Concomitant]
     Active Substance: MOMETASONE
  125. ACENOCOUMAROL [Concomitant]
     Active Substance: ACENOCOUMAROL
     Indication: Product used for unknown indication
  126. ACENOCOUMAROL [Concomitant]
     Active Substance: ACENOCOUMAROL
     Route: 048
  127. ACENOCOUMAROL [Concomitant]
     Active Substance: ACENOCOUMAROL
     Route: 048
  128. ACENOCOUMAROL [Concomitant]
     Active Substance: ACENOCOUMAROL
  129. FUROSEMIDE [Concomitant]
     Active Substance: FUROSEMIDE
     Indication: Dyspnoea
     Dosage: UNK, Q3D
     Dates: start: 20191206, end: 20191209
  130. FUROSEMIDE [Concomitant]
     Active Substance: FUROSEMIDE
     Dosage: UNK, Q3D
     Dates: start: 20191206, end: 20191209
  131. FUROSEMIDE [Concomitant]
     Active Substance: FUROSEMIDE
     Dosage: UNK, Q3D
     Route: 042
     Dates: start: 20191206, end: 20191209
  132. FUROSEMIDE [Concomitant]
     Active Substance: FUROSEMIDE
     Dosage: UNK, Q3D
     Route: 042
     Dates: start: 20191206, end: 20191209
  133. FUROSEMIDE [Concomitant]
     Active Substance: FUROSEMIDE
     Dates: start: 20201007, end: 20201013
  134. FUROSEMIDE [Concomitant]
     Active Substance: FUROSEMIDE
     Dates: start: 20201007, end: 20201013
  135. FUROSEMIDE [Concomitant]
     Active Substance: FUROSEMIDE
     Route: 042
     Dates: start: 20201007, end: 20201013
  136. FUROSEMIDE [Concomitant]
     Active Substance: FUROSEMIDE
     Route: 042
     Dates: start: 20201007, end: 20201013
  137. FLUTICASONE [Concomitant]
     Active Substance: FLUTICASONE
     Indication: Product used for unknown indication
     Dates: start: 20191207, end: 20191217
  138. FLUTICASONE [Concomitant]
     Active Substance: FLUTICASONE
     Route: 065
     Dates: start: 20191207, end: 20191217
  139. FLUTICASONE [Concomitant]
     Active Substance: FLUTICASONE
     Route: 065
     Dates: start: 20191207, end: 20191217
  140. FLUTICASONE [Concomitant]
     Active Substance: FLUTICASONE
     Dates: start: 20191207, end: 20191217
  141. ACENOCOUMAROL [Concomitant]
     Active Substance: ACENOCOUMAROL
     Indication: Product used for unknown indication
  142. ACENOCOUMAROL [Concomitant]
     Active Substance: ACENOCOUMAROL
     Route: 048
  143. ACENOCOUMAROL [Concomitant]
     Active Substance: ACENOCOUMAROL
     Route: 048
  144. ACENOCOUMAROL [Concomitant]
     Active Substance: ACENOCOUMAROL
  145. ACETAMINOPHEN [Concomitant]
     Active Substance: ACETAMINOPHEN
     Indication: Pain
     Dates: start: 20201010, end: 20201011
  146. ACETAMINOPHEN [Concomitant]
     Active Substance: ACETAMINOPHEN
     Route: 048
     Dates: start: 20201010, end: 20201011
  147. ACETAMINOPHEN [Concomitant]
     Active Substance: ACETAMINOPHEN
     Route: 048
     Dates: start: 20201010, end: 20201011
  148. ACETAMINOPHEN [Concomitant]
     Active Substance: ACETAMINOPHEN
     Dates: start: 20201010, end: 20201011
  149. ONDANSETRON [Concomitant]
     Active Substance: ONDANSETRON
     Indication: Pruritus
     Dates: start: 20210129, end: 20210130
  150. ONDANSETRON [Concomitant]
     Active Substance: ONDANSETRON
     Route: 065
     Dates: start: 20210129, end: 20210130
  151. ONDANSETRON [Concomitant]
     Active Substance: ONDANSETRON
     Route: 065
     Dates: start: 20210129, end: 20210130
  152. ONDANSETRON [Concomitant]
     Active Substance: ONDANSETRON
     Dates: start: 20210129, end: 20210130
  153. ACETYLCYSTEINE [Concomitant]
     Active Substance: ACETYLCYSTEINE
     Indication: Product used for unknown indication
     Dates: start: 20210127, end: 20210128
  154. ACETYLCYSTEINE [Concomitant]
     Active Substance: ACETYLCYSTEINE
     Route: 065
     Dates: start: 20210127, end: 20210128
  155. ACETYLCYSTEINE [Concomitant]
     Active Substance: ACETYLCYSTEINE
     Route: 065
     Dates: start: 20210127, end: 20210128
  156. ACETYLCYSTEINE [Concomitant]
     Active Substance: ACETYLCYSTEINE
     Dates: start: 20210127, end: 20210128
  157. MORPHINE [Concomitant]
     Active Substance: MORPHINE
     Indication: Dyspnoea
     Dates: start: 20210126, end: 20210130
  158. MORPHINE [Concomitant]
     Active Substance: MORPHINE
     Route: 058
     Dates: start: 20210126, end: 20210130
  159. MORPHINE [Concomitant]
     Active Substance: MORPHINE
     Route: 058
     Dates: start: 20210126, end: 20210130
  160. MORPHINE [Concomitant]
     Active Substance: MORPHINE
     Dates: start: 20210126, end: 20210130
  161. Artelac [Concomitant]
     Indication: Dry eye
     Dates: start: 20200904, end: 20210130
  162. Artelac [Concomitant]
     Route: 065
     Dates: start: 20200904, end: 20210130
  163. Artelac [Concomitant]
     Route: 065
     Dates: start: 20200904, end: 20210130
  164. Artelac [Concomitant]
     Dates: start: 20200904, end: 20210130
  165. PRAVASTATIN [Concomitant]
     Active Substance: PRAVASTATIN
     Indication: Product used for unknown indication
  166. PRAVASTATIN [Concomitant]
     Active Substance: PRAVASTATIN
     Route: 065
  167. PRAVASTATIN [Concomitant]
     Active Substance: PRAVASTATIN
     Route: 065
  168. PRAVASTATIN [Concomitant]
     Active Substance: PRAVASTATIN
  169. ALBUTEROL [Concomitant]
     Active Substance: ALBUTEROL
     Indication: Product used for unknown indication
  170. ALBUTEROL [Concomitant]
     Active Substance: ALBUTEROL
     Route: 065
  171. ALBUTEROL [Concomitant]
     Active Substance: ALBUTEROL
     Route: 065
  172. ALBUTEROL [Concomitant]
     Active Substance: ALBUTEROL

REACTIONS (25)
  - Pulmonary arterial hypertension [Fatal]
  - Condition aggravated [Fatal]
  - Pleural effusion [Recovering/Resolving]
  - Pulmonary oedema [Unknown]
  - Atrioventricular block complete [Recovering/Resolving]
  - Renal impairment [Recovering/Resolving]
  - Dyspnoea [Recovering/Resolving]
  - Right ventricular failure [Not Recovered/Not Resolved]
  - Disease progression [Not Recovered/Not Resolved]
  - Cardiac failure [Unknown]
  - Hypotension [Recovering/Resolving]
  - Pulmonary veno-occlusive disease [Unknown]
  - Hypoxia [Recovering/Resolving]
  - Swelling face [Unknown]
  - Dysphagia [Unknown]
  - Constipation [Recovered/Resolved]
  - Decreased appetite [Unknown]
  - Concomitant disease aggravated [Recovering/Resolving]
  - Creatinine renal clearance decreased [Not Recovered/Not Resolved]
  - Weight decreased [Recovered/Resolved with Sequelae]
  - Peripheral swelling [Unknown]
  - Dry eye [Unknown]
  - Haematuria [Unknown]
  - Headache [Recovered/Resolved]
  - Rhinorrhoea [Unknown]

NARRATIVE: CASE EVENT DATE: 20180906
